FAERS Safety Report 7860356-4 (Version None)
Quarter: 2011Q4

REPORT INFORMATION
  Report Type: 
  Country: None (occurrence: None)
  Receive Date: 20111027
  Receipt Date: 20111013
  Transmission Date: 20120403
  Serious: Yes (Other)
  Sender: FDA-Public Use
  Company Number: FR-ELI_LILLY_AND_COMPANY-FR201110004230

PATIENT
  Sex: Female
  Weight: 54 kg

DRUGS (1)
  1. RALOXIFENE [Suspect]
     Indication: OSTEOPENIA
     Dosage: 60 MG, QD
     Dates: start: 20090108, end: 20110924

REACTIONS (4)
  - BLOOD PRESSURE FLUCTUATION [None]
  - CARDIAC MURMUR [None]
  - RETINAL VEIN OCCLUSION [None]
  - RETINOPATHY HYPERTENSIVE [None]
